FAERS Safety Report 11716481 (Version 2)
Quarter: 2015Q4

REPORT INFORMATION
  Report Type: Spontaneous
  Country: US (occurrence: US)
  Receive Date: 20151104
  Receipt Date: 20151110
  Transmission Date: 20160304
  Serious: No
  Sender: FDA-Public Use
  Company Number: US-ELI_LILLY_AND_COMPANY-US201108000321

PATIENT
  Age: 92 Year
  Sex: Female

DRUGS (2)
  1. FORTEO [Suspect]
     Active Substance: TERIPARATIDE
     Dosage: 20 UG, QD
     Route: 065
  2. FORTEO [Suspect]
     Active Substance: TERIPARATIDE
     Indication: OSTEOPOROSIS
     Dosage: 20 UG, QD
     Route: 065
     Dates: start: 20110702

REACTIONS (6)
  - Vision blurred [Unknown]
  - Diarrhoea [Unknown]
  - Flatulence [Unknown]
  - Constipation [Unknown]
  - Visual impairment [Unknown]
  - Paraesthesia [Unknown]

NARRATIVE: CASE EVENT DATE: 20120610
